FAERS Safety Report 13635399 (Version 1)
Quarter: 2017Q2

REPORT INFORMATION
  Report Type: Spontaneous
  Country: US (occurrence: US)
  Receive Date: 20170531
  Receipt Date: 20170531
  Transmission Date: 20170830
  Serious: No
  Sender: FDA-Public Use
  Company Number: US-ASTELLAS-1712299

PATIENT
  Age: 46 Year
  Sex: Male

DRUGS (2)
  1. TARCEVA [Suspect]
     Active Substance: ERLOTINIB HYDROCHLORIDE
     Indication: RENAL CANCER
     Route: 048
     Dates: start: 20150904, end: 20160212
  2. OPDIVO [Concomitant]
     Active Substance: NIVOLUMAB
     Dosage: 100MG/10ML
     Route: 065

REACTIONS (1)
  - Drug ineffective [Unknown]

NARRATIVE: CASE EVENT DATE: 20160212
